FAERS Safety Report 22071207 (Version 1)
Quarter: 2023Q1

REPORT INFORMATION
  Report Type: Spontaneous
  Country: US (occurrence: None)
  Receive Date: 20230307
  Receipt Date: 20230307
  Transmission Date: 20230417
  Serious: Yes (Other)
  Sender: FDA-Public Use
  Company Number: None

PATIENT
  Age: 59 Year
  Sex: Male
  Weight: 102 kg

DRUGS (7)
  1. TEMOZOLOMIDE [Suspect]
     Active Substance: TEMOZOLOMIDE
     Indication: Glioma
     Dosage: FREQUENCY : DAILY;?
     Route: 048
     Dates: start: 202204, end: 202212
  2. GABAPENTIN [Concomitant]
     Active Substance: GABAPENTIN
  3. METHYLPREDNISOLONE [Concomitant]
     Active Substance: METHYLPREDNISOLONE
  4. ONDANSETRON [Concomitant]
     Active Substance: ONDANSETRON
  5. DULOXETINE [Concomitant]
     Active Substance: DULOXETINE
  6. DIAZEPAM [Concomitant]
     Active Substance: DIAZEPAM
  7. Cephalexin [Concomitant]

REACTIONS (4)
  - Asthenia [None]
  - Musculoskeletal disorder [None]
  - Vascular graft [None]
  - Fine motor skill dysfunction [None]

NARRATIVE: CASE EVENT DATE: 20220601
